FAERS Safety Report 6970408-9 (Version None)
Quarter: 2010Q3

REPORT INFORMATION
  Report Type: 
  Country: None (occurrence: None)
  Receive Date: 20100908
  Receipt Date: 20100830
  Transmission Date: 20110219
  Serious: Yes (Other)
  Sender: FDA-Public Use
  Company Number: US-BAXTER-2010BH022255

PATIENT
  Sex: Male

DRUGS (1)
  1. TISSEEL VH KIT [Suspect]
     Indication: INTERVERTEBRAL DISC DISORDER
     Route: 065
     Dates: start: 20070814, end: 20070814

REACTIONS (1)
  - INJURY [None]
